FAERS Safety Report 19785342 (Version 2)
Quarter: 2021Q3

REPORT INFORMATION
  Report Type: Spontaneous
  Country: US (occurrence: US)
  Receive Date: 20210903
  Receipt Date: 20210909
  Transmission Date: 20211014
  Serious: Yes (Other)
  Sender: FDA-Public Use
  Company Number: US-DRREDDYS-LIT/USA/21/0139658

PATIENT
  Age: 57 Year
  Sex: Male

DRUGS (4)
  1. VALPROIC ACID. [Suspect]
     Active Substance: VALPROIC ACID
     Indication: EPILEPSY
  2. ESCITALOPRAM [Suspect]
     Active Substance: ESCITALOPRAM OXALATE
     Indication: PRODUCT USED FOR UNKNOWN INDICATION
  3. ZOLPIDEM [Suspect]
     Active Substance: ZOLPIDEM TARTRATE
     Indication: EPILEPSY
  4. LACOSAMIDE. [Suspect]
     Active Substance: LACOSAMIDE
     Indication: EPILEPSY

REACTIONS (10)
  - Parkinsonian rest tremor [Recovered/Resolved]
  - Postictal state [Recovered/Resolved]
  - Petit mal epilepsy [Recovered/Resolved]
  - Screaming [Recovered/Resolved]
  - Automatism [Recovered/Resolved]
  - Tardive dyskinesia [Recovered/Resolved]
  - Somnolence [Recovered/Resolved]
  - Focal dyscognitive seizures [Recovered/Resolved]
  - Drug ineffective [Recovered/Resolved]
  - Partial seizures with secondary generalisation [Recovered/Resolved]
